FAERS Safety Report 24594879 (Version 1)
Quarter: 2024Q4

REPORT INFORMATION
  Report Type: Spontaneous
  Country: US (occurrence: US)
  Receive Date: 20241108
  Receipt Date: 20241108
  Transmission Date: 20250115
  Serious: Yes (Hospitalization, Congenital Anomaly)
  Sender: VERTEX
  Company Number: US-VERTEX PHARMACEUTICALS-2024-017236

PATIENT
  Sex: Male

DRUGS (1)
  1. TRIKAFTA [Suspect]
     Active Substance: ELEXACAFTOR\IVACAFTOR\TEZACAFTOR
     Indication: Cystic fibrosis
     Dosage: 2 ORANGE TABS IN AM; 1 BLUE TAB IN PM
     Route: 048

REACTIONS (4)
  - Hereditary spherocytosis [Unknown]
  - Anaemia [Unknown]
  - Jaundice neonatal [Unknown]
  - Hypothermia [Unknown]

NARRATIVE: CASE EVENT DATE: 20240101
